FAERS Safety Report 5011522-7 (Version None)
Quarter: 2006Q2

REPORT INFORMATION
  Report Type: 
  Country: None (occurrence: None)
  Receive Date: 20060524
  Receipt Date: 20060518
  Transmission Date: 20061013
  Serious: Yes (Other)
  Sender: FDA-Public Use
  Company Number: TPA2005A01165

PATIENT
  Age: 72 Year
  Sex: Female

DRUGS (6)
  1. ACTOS [Suspect]
     Indication: DIABETES MELLITUS NON-INSULIN-DEPENDENT
     Dosage: 15 MG, PER ORAL
     Route: 048
     Dates: end: 20050602
  2. AMARYL [Suspect]
     Indication: DIABETES MELLITUS
     Dosage: 1 MG
  3. PREDNISONE TAB [Suspect]
     Dates: start: 20050601
  4. SYNTHROID [Concomitant]
  5. LIPITOR [Concomitant]
  6. AXID [Concomitant]

REACTIONS (3)
  - BLOOD GLUCOSE INCREASED [None]
  - OEDEMA PERIPHERAL [None]
  - POLYMYALGIA RHEUMATICA [None]
